FAERS Safety Report 23523924 (Version 1)
Quarter: 2024Q1

REPORT INFORMATION
  Report Type: Report from Study
  Country: US (occurrence: US)
  Receive Date: 20240214
  Receipt Date: 20240214
  Transmission Date: 20240410
  Serious: Yes (Other)
  Sender: FDA-Public Use
  Company Number: US-INCYTE CORPORATION-2024IN001563

PATIENT

DRUGS (1)
  1. JAKAFI [Suspect]
     Active Substance: RUXOLITINIB
     Indication: Polycythaemia vera
     Dosage: 15 MILLIGRAM, BID (30MG)
     Route: 065

REACTIONS (4)
  - Neutropenia [Unknown]
  - Haematocrit increased [Unknown]
  - Haemoglobin increased [Unknown]
  - White blood cell count increased [Unknown]
